FAERS Safety Report 4349516-7 (Version None)
Quarter: 2004Q2

REPORT INFORMATION
  Report Type: 
  Country: None (occurrence: None)
  Receive Date: 20040426
  Receipt Date: 20040412
  Transmission Date: 20050107
  Serious: Yes (Hospitalization, Other)
  Sender: FDA-Public Use
  Company Number: 200402764

PATIENT
  Age: 36 Year
  Sex: Female

DRUGS (5)
  1. BOTOX [Suspect]
     Indication: BACK PAIN
     Dates: start: 20020305, end: 20020314
  2. DEPO-MEDROL [Suspect]
     Indication: BACK PAIN
  3. CELEBREX [Concomitant]
  4. OXYCONTIN [Concomitant]
  5. PROZAC [Concomitant]

REACTIONS (5)
  - DYSARTHRIA [None]
  - PSYCHOMOTOR HYPERACTIVITY [None]
  - PSYCHOTIC DISORDER [None]
  - SUICIDE ATTEMPT [None]
  - THINKING ABNORMAL [None]
